FAERS Safety Report 16094197 (Version 1)
Quarter: 2019Q1

REPORT INFORMATION
  Report Type: Spontaneous
  Country: US (occurrence: US)
  Receive Date: 20190320
  Receipt Date: 20190320
  Transmission Date: 20190418
  Serious: No
  Sender: FDA-Public Use
  Company Number: US-AMGEN INC.-USASP2019042920

PATIENT
  Age: 29 Year
  Sex: Female

DRUGS (3)
  1. FROVATRIPTAN. [Concomitant]
     Active Substance: FROVATRIPTAN
     Indication: MIGRAINE
     Dosage: 2.5 MILLIGRAM, AS NECESSARY
     Dates: start: 2019
  2. AIMOVIG [Suspect]
     Active Substance: ERENUMAB-AOOE
     Indication: MIGRAINE
     Dosage: 70 MILLIGRAM, QMO
     Route: 065
  3. COQ 10 [Concomitant]
     Active Substance: UBIDECARENONE
     Dosage: UNK

REACTIONS (1)
  - Menstruation delayed [Unknown]
